FAERS Safety Report 7212437-6 (Version None)
Quarter: 2011Q1

REPORT INFORMATION
  Report Type: 
  Country: None (occurrence: None)
  Receive Date: 20110106
  Receipt Date: 20101228
  Transmission Date: 20110831
  Serious: Yes (Hospitalization)
  Sender: FDA-Public Use
  Company Number: US-JNJFOC-20101209071

PATIENT
  Sex: Male
  Weight: 94.8 kg

DRUGS (1)
  1. REMICADE [Suspect]
     Indication: CROHN'S DISEASE
     Route: 042

REACTIONS (4)
  - STAPHYLOCOCCAL INFECTION [None]
  - BACK DISORDER [None]
  - BLOOD PRESSURE DECREASED [None]
  - PYREXIA [None]
